FAERS Safety Report 25671510 (Version 5)
Quarter: 2025Q4

REPORT INFORMATION
  Report Type: Report from Study
  Country: CA (occurrence: CA)
  Receive Date: 20250812
  Receipt Date: 20251103
  Transmission Date: 20260119
  Serious: Yes (Hospitalization, Other)
  Sender: ALEXION PHARMACEUTICALS
  Company Number: CA-AstraZeneca-CH-00923233A

PATIENT
  Sex: Male

DRUGS (15)
  1. ACALABRUTINIB [Suspect]
     Active Substance: ACALABRUTINIB
     Indication: Mantle cell lymphoma
     Dosage: 100 MILLIGRAM
  2. ACALABRUTINIB [Suspect]
     Active Substance: ACALABRUTINIB
     Dosage: 200 MILLIGRAM
  3. APIXABAN [Concomitant]
     Active Substance: APIXABAN
  4. METOPROLOL [Concomitant]
     Active Substance: METOPROLOL
  5. ROSUVASTATIN [Concomitant]
     Active Substance: ROSUVASTATIN
  6. CANDESARTAN [Concomitant]
     Active Substance: CANDESARTAN
  7. MAGNESIUM [Concomitant]
     Active Substance: MAGNESIUM
  8. PANTOPRAZOLE [Concomitant]
     Active Substance: PANTOPRAZOLE
  9. METFORMIN [Concomitant]
     Active Substance: METFORMIN HYDROCHLORIDE
  10. VITAMIN B12 [Concomitant]
     Active Substance: CYANOCOBALAMIN
  11. FOLIC ACID [Concomitant]
     Active Substance: FOLIC ACID
  12. LUTEIN [Concomitant]
     Active Substance: LUTEIN
  13. ZEAXANTHIN [Concomitant]
     Active Substance: ZEAXANTHIN
  14. CALCIUM [Concomitant]
     Active Substance: CALCIUM
  15. METRONIDAZOLE [Concomitant]
     Active Substance: METRONIDAZOLE

REACTIONS (8)
  - Tumour lysis syndrome [Unknown]
  - Delirium [Recovered/Resolved]
  - Heart rate increased [Recovered/Resolved]
  - Confusional state [Unknown]
  - Off label use [Unknown]
  - Malaise [Recovered/Resolved]
  - Hypervolaemia [Recovered/Resolved]
  - Product dose omission issue [Recovered/Resolved]
